FAERS Safety Report 6411795-X (Version None)
Quarter: 2009Q4

REPORT INFORMATION
  Report Type: 
  Country: None (occurrence: None)
  Receive Date: 20091023
  Receipt Date: 20091020
  Transmission Date: 20100525
  Serious: Yes (Death, Hospitalization)
  Sender: FDA-Public Use
  Company Number: GR-BRISTOL-MYERS SQUIBB COMPANY-14800338

PATIENT
  Age: 57 Year
  Sex: Female

DRUGS (14)
  1. IXEMPRA KIT [Suspect]
     Indication: BREAST CANCER METASTATIC
     Dosage: REDUCED BY 20%;GIVEN 67MG ON 04AUG09 + 10SEP09; ALSO GIVEN ON 20AUG09
     Route: 042
     Dates: start: 20090730, end: 20090910
  2. AVELOX [Concomitant]
     Indication: RESPIRATORY TRACT INFECTION
     Route: 048
     Dates: start: 20090910, end: 20090914
  3. DIFLUCORTOLONE VALERATE [Concomitant]
     Indication: DERMATITIS
     Route: 061
     Dates: start: 20090914, end: 20090917
  4. ISOCONAZOLE NITRATE [Concomitant]
     Indication: DERMATITIS
     Route: 061
     Dates: start: 20090914, end: 20090917
  5. DAKTARIN [Concomitant]
     Indication: MUCOSAL INFLAMMATION
     Route: 025
     Dates: start: 20090914, end: 20090921
  6. DAKTARIN [Concomitant]
     Indication: DERMATITIS
     Route: 025
     Dates: start: 20090914, end: 20090921
  7. NYSTATIN [Concomitant]
     Indication: STOMATITIS
     Route: 048
     Dates: start: 20090916, end: 20090917
  8. TRETINOIN [Concomitant]
     Indication: ACNE
     Route: 061
     Dates: start: 20090804, end: 20090820
  9. DALACIN [Concomitant]
     Indication: ACNE
     Route: 061
     Dates: start: 20090804, end: 20090820
  10. LEVOCETIRIZINE DIHYDROCHLORIDE [Concomitant]
     Indication: ACNE
     Route: 061
     Dates: start: 20090820, end: 20090910
  11. MEDROL [Concomitant]
     Route: 048
     Dates: start: 20090820, end: 20090920
  12. ZOFRAN [Concomitant]
     Indication: PREMEDICATION
     Dosage: ALSO ON 20AUG09, 10SEP09
     Route: 042
     Dates: start: 20090720
  13. DEXAMETHASONE [Concomitant]
     Indication: PREMEDICATION
     Dosage: ALSO ON 20AUG09 AND 10SEP09
     Route: 042
     Dates: start: 20090720
  14. HYDERGINE [Concomitant]
     Indication: RASH
     Dosage: CREAM
     Route: 061
     Dates: start: 20090914, end: 20090918

REACTIONS (12)
  - ANAEMIA [None]
  - CARDIO-RESPIRATORY ARREST [None]
  - DIARRHOEA [None]
  - DYSPHONIA [None]
  - DYSPNOEA [None]
  - FATIGUE [None]
  - FEBRILE NEUTROPENIA [None]
  - NEUTROPHIL COUNT DECREASED [None]
  - PLATELET COUNT DECREASED [None]
  - RASH [None]
  - RENAL FAILURE [None]
  - SEPTIC SHOCK [None]
